FAERS Safety Report 12539227 (Version 6)
Quarter: 2017Q1

REPORT INFORMATION
  Report Type: Spontaneous
  Country: US (occurrence: US)
  Receive Date: 20160708
  Receipt Date: 20170124
  Transmission Date: 20170428
  Serious: Yes (Hospitalization, Congenital Anomaly, Other)
  Sender: FDA-Public Use
  Company Number: PHHY2015US131506

PATIENT
  Sex: Female

DRUGS (1)
  1. ZOFRAN [Suspect]
     Active Substance: ONDANSETRON HYDROCHLORIDE
     Indication: FOETAL EXPOSURE DURING PREGNANCY
     Dosage: MOTHER^S DOSE: 8 MG QD
     Route: 064

REACTIONS (15)
  - Cleft palate [Unknown]
  - Pain [Unknown]
  - Impetigo [Unknown]
  - Dehydration [Unknown]
  - Foetal exposure during pregnancy [Unknown]
  - Pharyngitis streptococcal [Unknown]
  - Attention deficit/hyperactivity disorder [Unknown]
  - Congenital scoliosis [Unknown]
  - Otitis media [Unknown]
  - Anaemia neonatal [Unknown]
  - Sinusitis [Unknown]
  - Oral viral infection [Unknown]
  - Speech disorder [Unknown]
  - Vertigo [Unknown]
  - Micturition urgency [Unknown]
